FAERS Safety Report 19928284 (Version 2)
Quarter: 2021Q4

REPORT INFORMATION
  Report Type: Report from Study
  Country: KR (occurrence: KR)
  Receive Date: 20211007
  Receipt Date: 20211019
  Transmission Date: 20220303
  Serious: Yes (Hospitalization)
  Sender: FDA-Public Use
  Company Number: KR-VIIV HEALTHCARE LIMITED-KR2021GSK205793

PATIENT
  Age: 48 Year
  Sex: Male
  Weight: 68 kg

DRUGS (9)
  1. DOLUTEGRAVIR SODIUM\LAMIVUDINE [Suspect]
     Active Substance: DOLUTEGRAVIR SODIUM\LAMIVUDINE
     Indication: HIV infection
     Dosage: 1 DF, QD
     Route: 048
     Dates: start: 20210223
  2. ALLEGRA [Concomitant]
     Active Substance: FEXOFENADINE HYDROCHLORIDE
     Indication: Nasal septum deviation
     Dosage: 120 MG, QD, 1
     Route: 048
     Dates: start: 20210803, end: 20210824
  3. CITUS [Concomitant]
     Indication: Nasal septum deviation
     Dosage: 50 MG, QD (1 TAB)
     Route: 048
     Dates: start: 20210803, end: 20210824
  4. DYLASTINE [Concomitant]
     Indication: Nasal septum deviation
     Dosage: 1 DF, BID
     Route: 050
     Dates: start: 20210803, end: 20210824
  5. FLASINYL [Concomitant]
     Indication: Helicobacter gastritis
     Dosage: 500 MG, BID
     Route: 048
     Dates: start: 20210223, end: 20210305
  6. CLARI [Concomitant]
     Indication: Helicobacter gastritis
     Dosage: 500 MG, BID (TAB), 1
     Route: 048
     Dates: start: 20210223, end: 20210305
  7. AMOXICILLIN [Concomitant]
     Active Substance: AMOXICILLIN
     Indication: Helicobacter gastritis
     Dosage: 500 MG, BID (CAPSULE), 1
     Route: 048
     Dates: start: 20210223, end: 20210305
  8. LANSOPRAZOLE [Concomitant]
     Active Substance: LANSOPRAZOLE
     Indication: Duodenal ulcer
     Dosage: 30 MG, BID (TABLET), 1
     Route: 048
     Dates: start: 20210223, end: 20210305
  9. DUKARB [Concomitant]
     Indication: Hypertension
     Dosage: 60/5, 1 DF, QD
     Route: 048
     Dates: start: 2020

REACTIONS (1)
  - Benign neoplasm of skin [Recovered/Resolved]

NARRATIVE: CASE EVENT DATE: 20210906
